FAERS Safety Report 14153769 (Version 1)
Quarter: 2017Q4

REPORT INFORMATION
  Report Type: Spontaneous
  Country: US (occurrence: US)
  Receive Date: 20171102
  Receipt Date: 20171102
  Transmission Date: 20180321
  Serious: No
  Sender: FDA-Public Use
  Company Number: US-SA-2017SA190774

PATIENT
  Age: 62 Year
  Sex: Female

DRUGS (6)
  1. COQ10 [Concomitant]
     Active Substance: UBIDECARENONE
  2. KLONOPIN [Concomitant]
     Active Substance: CLONAZEPAM
  3. PRALUENT [Suspect]
     Active Substance: ALIROCUMAB
     Indication: BLOOD CHOLESTEROL INCREASED
     Route: 058
     Dates: start: 201702
  4. ALIROCUMAB PREFILLED PEN [Suspect]
     Active Substance: ALIROCUMAB
     Indication: BLOOD CHOLESTEROL INCREASED
     Dates: start: 201702
  5. VITAMIN D3 [Concomitant]
     Active Substance: CHOLECALCIFEROL
  6. VITAMINS NOS [Concomitant]
     Active Substance: VITAMINS

REACTIONS (7)
  - Musculoskeletal stiffness [Unknown]
  - Urinary tract infection [Unknown]
  - Sinusitis [Unknown]
  - Migraine [Unknown]
  - Arthralgia [Unknown]
  - Asthenia [Unknown]
  - Dyskinesia [Unknown]

NARRATIVE: CASE EVENT DATE: 2017
